FAERS Safety Report 4398290-7 (Version None)
Quarter: 2004Q3

REPORT INFORMATION
  Report Type: 
  Country: None (occurrence: None)
  Receive Date: 20040712
  Receipt Date: 20040701
  Transmission Date: 20050211
  Serious: Yes (Death, Life-Threatening, Hospitalization)
  Sender: FDA-Public Use
  Company Number: JP-2004-026888

PATIENT
  Age: 68 Year
  Sex: Female
  Weight: 62 kg

DRUGS (7)
  1. BETAFERON (INTERFERON BETA-1B) INJECTION, 250 UG [Suspect]
     Indication: MULTIPLE SCLEROSIS
     Dosage: 8 MIU, EVERY 2D, SUBCUTANEOUS
     Route: 058
     Dates: start: 20040510, end: 20040528
  2. PRAVASTATIN SODIUM [Concomitant]
  3. PARIET (RABEPRAZOLE SODIUM) TABLET [Concomitant]
  4. LENDORMIN (BROTIZOLAM) TABLET [Concomitant]
  5. ASPARA K (ASPARTATE POTASSIUM) TABLET [Concomitant]
  6. TEGRETOL [Concomitant]
  7. ONE-ALPHA (ALFACALCIDOL) TABLET [Concomitant]

REACTIONS (6)
  - BLOOD BETA-D-GLUCAN INCREASED [None]
  - C-REACTIVE PROTEIN INCREASED [None]
  - DUPUYTREN'S CONTRACTURE [None]
  - FATIGUE [None]
  - INTERSTITIAL LUNG DISEASE [None]
  - THERAPY NON-RESPONDER [None]
